FAERS Safety Report 17102570 (Version 3)
Quarter: 2020Q1

REPORT INFORMATION
  Report Type: Spontaneous
  Country: JP (occurrence: JP)
  Receive Date: 20191202
  Receipt Date: 20200117
  Transmission Date: 20200409
  Serious: Yes (Hospitalization)
  Sender: FDA-Public Use
  Company Number: JP-BIOGEN-2019BI00793873

PATIENT
  Age: 60 Year
  Sex: Female

DRUGS (14)
  1. LENDORMIN D [Concomitant]
     Active Substance: BROTIZOLAM
     Route: 065
  2. ALFACALCIDOL [Concomitant]
     Active Substance: ALFACALCIDOL
     Route: 065
  3. BETANIS [Concomitant]
     Active Substance: MIRABEGRON
     Route: 065
  4. ALENDRONATE [Concomitant]
     Active Substance: ALENDRONATE SODIUM
     Route: 065
  5. GABALON [Concomitant]
     Active Substance: BACLOFEN
     Route: 065
  6. TECFIDERA [Suspect]
     Active Substance: DIMETHYL FUMARATE
     Indication: MULTIPLE SCLEROSIS
     Dosage: THE DOSE WAS GRADUALLY INCREASED FROM 120 MG/DAY TO 480 MG/DAY
     Route: 065
     Dates: start: 20190629, end: 20191012
  7. URSO [Concomitant]
     Active Substance: URSODIOL
     Route: 065
  8. MIYA-BM [Concomitant]
     Active Substance: CLOSTRIDIUM BUTYRICUM SPORES STRAIN M-55
     Route: 065
  9. NEXIUM [Concomitant]
     Active Substance: ESOMEPRAZOLE MAGNESIUM
     Route: 065
  10. ZOLPIDEM [Concomitant]
     Active Substance: ZOLPIDEM TARTRATE
     Route: 065
  11. TYSABRI [Suspect]
     Active Substance: NATALIZUMAB
     Indication: MULTIPLE SCLEROSIS
     Route: 065
     Dates: start: 20190908
  12. MAGMITT [Concomitant]
     Active Substance: MAGNESIUM OXIDE
     Route: 065
  13. SODIUM FERROUS CITRATE [Concomitant]
     Active Substance: SODIUM FERROUS CITRATE
     Route: 065
  14. LIORESAL [Concomitant]
     Active Substance: BACLOFEN
     Route: 065

REACTIONS (5)
  - Multiple sclerosis relapse [Recovered/Resolved]
  - Hot flush [Recovered/Resolved]
  - Flushing [Recovered/Resolved]
  - Hypersensitivity [Recovered/Resolved]
  - Circumstance or information capable of leading to medication error [Unknown]

NARRATIVE: CASE EVENT DATE: 20190908
